FAERS Safety Report 6115110-0 (Version None)
Quarter: 2009Q1

REPORT INFORMATION
  Report Type: 
  Country: None (occurrence: None)
  Receive Date: 20090311
  Receipt Date: 20080815
  Transmission Date: 20090719
  Serious: Yes (Other)
  Sender: FDA-Public Use
  Company Number: US200808003502

PATIENT
  Sex: Female

DRUGS (2)
  1. GEMZAR [Suspect]
     Dosage: 800 MG/M2
     Dates: start: 20080610, end: 20080812
  2. CISPLATIN [Concomitant]

REACTIONS (1)
  - LUNG INFILTRATION [None]
